FAERS Safety Report 24584640 (Version 1)
Quarter: 2024Q4

REPORT INFORMATION
  Report Type: Other
  Country: IL (occurrence: IL)
  Receive Date: 20241106
  Receipt Date: 20241106
  Transmission Date: 20250115
  Serious: Yes (Life-Threatening)
  Sender: B BRAUN
  Company Number: IL-B.Braun Medical Inc.-2164512

PATIENT
  Age: 10 Year
  Sex: Female

DRUGS (2)
  1. MEROPENEM [Suspect]
     Active Substance: MEROPENEM
     Indication: Bacteraemia
  2. INVESTIGATIONAL PRODUCT [Suspect]
     Active Substance: INVESTIGATIONAL PRODUCT

REACTIONS (6)
  - Liver function test increased [Unknown]
  - Off label use [Unknown]
  - Drug resistance [Unknown]
  - Coma [Unknown]
  - Neurological decompensation [Unknown]
  - Pyrexia [Unknown]
